FAERS Safety Report 7389495-1 (Version None)
Quarter: 2011Q2

REPORT INFORMATION
  Report Type: 
  Country: None (occurrence: None)
  Receive Date: 20110401
  Receipt Date: 20110322
  Transmission Date: 20111010
  Serious: Yes (Other)
  Sender: FDA-Public Use
  Company Number: FR-KINGPHARMUSA00001-K201100321

PATIENT
  Age: 79 Year
  Sex: Female

DRUGS (6)
  1. ALTACE [Suspect]
     Dosage: 2.5 MG, BID
     Route: 048
     Dates: start: 20090101
  2. MAGNESIUM VERLA [Concomitant]
  3. LOVAZA [Concomitant]
  4. CRATAEGUS EXTRACT [Concomitant]
  5. FUROSEMID [Concomitant]
     Dosage: 40 MG, UNK
  6. MARCUMAR [Concomitant]
     Dosage: 3 MG, QD

REACTIONS (4)
  - DIPLEGIA [None]
  - FATIGUE [None]
  - HYPOAESTHESIA [None]
  - ALOPECIA [None]
